FAERS Safety Report 7297760-1 (Version None)
Quarter: 2011Q1

REPORT INFORMATION
  Report Type: 
  Country: None (occurrence: None)
  Receive Date: 20110214
  Receipt Date: 20110214
  Transmission Date: 20110831
  Serious: Yes (Other)
  Sender: FDA-Public Use
  Company Number: None

PATIENT
  Age: 42 Year
  Sex: Female
  Weight: 78.9259 kg

DRUGS (4)
  1. PERCOCET [Concomitant]
  2. IBUPROFEN [Concomitant]
  3. LANSOPRAZOLE [Concomitant]
  4. NIFEDIPINE [Suspect]
     Indication: BLOOD PRESSURE INCREASED
     Dosage: 60MG 1 TIME PO
     Route: 048
     Dates: start: 20110202, end: 20110202

REACTIONS (8)
  - DYSPNOEA [None]
  - SINUS TACHYCARDIA [None]
  - PALPITATIONS [None]
  - MUSCULAR WEAKNESS [None]
  - ELECTROCARDIOGRAM [None]
  - CHEST DISCOMFORT [None]
  - HYPERTENSION [None]
  - BLOOD PRESSURE DECREASED [None]
